FAERS Safety Report 10250674 (Version 1)
Quarter: 2014Q2

REPORT INFORMATION
  Report Type: Spontaneous
  Country: ZA (occurrence: ZA)
  Receive Date: 20140620
  Receipt Date: 20140620
  Transmission Date: 20141212
  Serious: Yes (Hospitalization)
  Sender: FDA-Public Use
  Company Number: ZA-GLAXOSMITHKLINE-B1005795A

PATIENT
  Age: 45 Year
  Sex: Male
  Weight: 80 kg

DRUGS (1)
  1. NEOTIGASON [Suspect]
     Indication: PSORIASIS
     Dosage: 10MG TWICE PER DAY
     Route: 048
     Dates: start: 20140509, end: 20140516

REACTIONS (2)
  - Dermatitis exfoliative [Recovered/Resolved]
  - Arthralgia [Recovered/Resolved]
